FAERS Safety Report 12312703 (Version 1)
Quarter: 2016Q2

REPORT INFORMATION
  Report Type: Spontaneous
  Country: AU (occurrence: AU)
  Receive Date: 20160428
  Receipt Date: 20160428
  Transmission Date: 20160815
  Serious: Yes (Other)
  Sender: FDA-Public Use
  Company Number: AU-HOSPIRA-3267646

PATIENT
  Sex: Female

DRUGS (1)
  1. METHOTREXATE [Suspect]
     Active Substance: METHOTREXATE
     Indication: ARTHRITIS
     Dosage: STARTED OVER 10 YEARS AGO, STOPPED ABOUT 6 YEARS AGO
     Route: 065

REACTIONS (3)
  - Pneumonia [Unknown]
  - Device related infection [Unknown]
  - Immune system disorder [Unknown]
